FAERS Safety Report 18031546 (Version 2)
Quarter: 2020Q3

REPORT INFORMATION
  Report Type: Spontaneous
  Country: US (occurrence: US)
  Receive Date: 20200716
  Receipt Date: 20200720
  Transmission Date: 20201103
  Serious: Yes (Other)
  Sender: FDA-Public Use
  Company Number: US-PFIZER INC-2020269766

PATIENT
  Age: 67 Year
  Sex: Male

DRUGS (2)
  1. HYDROCHLOROTHIAZIDE. [Concomitant]
     Active Substance: HYDROCHLOROTHIAZIDE
     Indication: HYPERTENSION
     Dosage: 25 MG, 1X/DAY (25MG ONCE A DAY)
  2. PREGABALIN. [Suspect]
     Active Substance: PREGABALIN
     Indication: TRIGEMINAL NEURALGIA
     Dosage: 75 MG, 2X/DAY (TAKING 75 MG TWICE DAILY FOR 1 1/2 WEEKS)
     Dates: start: 202007

REACTIONS (7)
  - Peripheral swelling [Not Recovered/Not Resolved]
  - Weight increased [Unknown]
  - Neuropathy peripheral [Unknown]
  - Off label use [Unknown]
  - Confusional state [Recovering/Resolving]
  - Product use in unapproved indication [Unknown]
  - Pain [Unknown]

NARRATIVE: CASE EVENT DATE: 202007
